FAERS Safety Report 14678224 (Version 1)
Quarter: 2018Q1

REPORT INFORMATION
  Report Type: Report from Study
  Country: CA (occurrence: CA)
  Receive Date: 20180326
  Receipt Date: 20180326
  Transmission Date: 20180509
  Serious: Yes (Other)
  Sender: FDA-Public Use
  Company Number: CA-AMGEN-CANSL2018028152

PATIENT
  Age: 66 Year
  Sex: Female

DRUGS (6)
  1. EZETIMIBE. [Concomitant]
     Active Substance: EZETIMIBE
     Indication: BLOOD CHOLESTEROL INCREASED
     Dosage: 10 MG, UNK
  2. HYDROCHLOROTHIAZIDE. [Concomitant]
     Active Substance: HYDROCHLOROTHIAZIDE
     Indication: HYPERTENSION
     Dosage: 12.5 MG, UNK
  3. REPATHA [Suspect]
     Active Substance: EVOLOCUMAB
     Indication: TYPE IIA HYPERLIPIDAEMIA
     Dosage: 140 MG/ML, UNK
     Route: 065
     Dates: start: 20180112, end: 20180309
  4. CANDESARTAN. [Concomitant]
     Active Substance: CANDESARTAN
     Indication: HYPERTENSION
  5. ATORVASTATIN [Concomitant]
     Active Substance: ATORVASTATIN
     Indication: BLOOD CHOLESTEROL INCREASED
     Dosage: 5 MG, UNK
  6. NIASPAN [Concomitant]
     Active Substance: NIACIN
     Indication: BLOOD CHOLESTEROL INCREASED
     Dosage: 500 MG, UNK

REACTIONS (19)
  - Abdominal pain upper [Unknown]
  - Pruritus [Unknown]
  - Disturbance in attention [Unknown]
  - Dry mouth [Unknown]
  - Feeling abnormal [Unknown]
  - Weight increased [Unknown]
  - Peripheral swelling [Unknown]
  - Feeling hot [Unknown]
  - Impaired quality of life [Unknown]
  - Respiratory tract infection [Unknown]
  - Insomnia [Unknown]
  - Head discomfort [Unknown]
  - Malaise [Unknown]
  - Abdominal discomfort [Unknown]
  - Fluid retention [Unknown]
  - Nasal dryness [Unknown]
  - Night sweats [Unknown]
  - Nausea [Unknown]
  - Dysgeusia [Unknown]

NARRATIVE: CASE EVENT DATE: 2018
